FAERS Safety Report 4436998-5 (Version None)
Quarter: 2004Q3

REPORT INFORMATION
  Report Type: 
  Country: None (occurrence: None)
  Receive Date: 20040830
  Receipt Date: 20040801
  Transmission Date: 20050211
  Serious: Yes (Other)
  Sender: FDA-Public Use
  Company Number: GB-ROCHE-376463

PATIENT
  Age: 61 Year
  Sex: Male
  Weight: 54.9 kg

DRUGS (3)
  1. CELLCEPT [Suspect]
     Indication: IMMUNOSUPPRESSION
     Route: 048
     Dates: start: 20040116, end: 20040630
  2. CELLCEPT [Suspect]
     Route: 048
     Dates: start: 20040115
  3. TACROLIMUS [Concomitant]
     Indication: IMMUNOSUPPRESSION

REACTIONS (4)
  - ANOREXIA [None]
  - HERPES SIMPLEX [None]
  - LETHARGY [None]
  - LOOSE STOOLS [None]
